FAERS Safety Report 5047462-7 (Version None)
Quarter: 2006Q3

REPORT INFORMATION
  Report Type: 
  Country: None (occurrence: None)
  Receive Date: 20060711
  Receipt Date: 20060701
  Transmission Date: 20061208
  Serious: Yes (Other)
  Sender: FDA-Public Use
  Company Number: PHEH2006US08632

PATIENT

DRUGS (3)
  1. TRILEPTAL [Suspect]
     Indication: BIPOLAR DISORDER
     Dosage: 150 MG, TID
  2. ABILIFY [Concomitant]
     Dosage: 5 MG, QD
  3. LITHIUM CARBONATE [Concomitant]
     Dosage: 300 MG, BID

REACTIONS (2)
  - PARTIAL SEIZURES [None]
  - THERAPEUTIC RESPONSE UNEXPECTED [None]
